FAERS Safety Report 19139150 (Version 1)
Quarter: 2021Q2

REPORT INFORMATION
  Report Type: Spontaneous
  Country: US (occurrence: US)
  Receive Date: 20210415
  Receipt Date: 20210415
  Transmission Date: 20210717
  Serious: No
  Sender: FDA-Public Use
  Company Number: US-JNJFOC-20210344377

PATIENT
  Age: 63 Year
  Sex: Male

DRUGS (11)
  1. COVID?19 VACCINE NOS. [Concomitant]
     Active Substance: COVID-19 VACCINE NOS
     Indication: PRODUCT USED FOR UNKNOWN INDICATION
     Route: 065
  2. ADVIL [Concomitant]
     Active Substance: IBUPROFEN
     Indication: AGEUSIA
  3. TYLENOL [Suspect]
     Active Substance: ACETAMINOPHEN
     Indication: HOT FLUSH
  4. ADVIL [Concomitant]
     Active Substance: IBUPROFEN
     Indication: NIGHT SWEATS
     Route: 065
  5. ADVIL [Concomitant]
     Active Substance: IBUPROFEN
     Indication: HOT FLUSH
  6. ADVIL [Concomitant]
     Active Substance: IBUPROFEN
     Indication: FEELING ABNORMAL
  7. ADVIL [Concomitant]
     Active Substance: IBUPROFEN
     Indication: DECREASED APPETITE
  8. TYLENOL [Suspect]
     Active Substance: ACETAMINOPHEN
     Indication: DECREASED APPETITE
  9. TYLENOL [Suspect]
     Active Substance: ACETAMINOPHEN
     Indication: NIGHT SWEATS
     Route: 065
  10. TYLENOL [Suspect]
     Active Substance: ACETAMINOPHEN
     Indication: AGEUSIA
  11. TYLENOL [Suspect]
     Active Substance: ACETAMINOPHEN
     Indication: FEELING ABNORMAL

REACTIONS (1)
  - Product use in unapproved indication [Unknown]
